FAERS Safety Report 25968737 (Version 2)
Quarter: 2025Q4

REPORT INFORMATION
  Report Type: Spontaneous
  Country: VE (occurrence: VE)
  Receive Date: 20251028
  Receipt Date: 20251128
  Transmission Date: 20260118
  Serious: Yes (Hospitalization)
  Sender: PFIZER
  Company Number: VE-PFIZER INC-PV202500082235

PATIENT
  Age: 65 Year
  Sex: Male

DRUGS (1)
  1. SUTENT [Suspect]
     Active Substance: SUNITINIB MALATE
     Indication: Renal cell carcinoma
     Dosage: 50 MG (1 X 50MG CAPSULE)

REACTIONS (7)
  - Metastases to central nervous system [Unknown]
  - Seizure [Unknown]
  - Brain oedema [Unknown]
  - Motor dysfunction [Unknown]
  - Loss of consciousness [Unknown]
  - Varicose ulceration [Unknown]
  - Localised infection [Unknown]
